FAERS Safety Report 11439473 (Version 1)
Quarter: 2015Q3

REPORT INFORMATION
  Report Type: Spontaneous
  Country: US (occurrence: US)
  Receive Date: 20150901
  Receipt Date: 20150901
  Transmission Date: 20151125
  Serious: No
  Sender: FDA-Public Use
  Company Number: US-ROCHE-1165521

PATIENT
  Age: 46 Year
  Sex: Female

DRUGS (3)
  1. RIBAVIRIN. [Suspect]
     Active Substance: RIBAVIRIN
     Indication: HEPATITIS C
     Route: 065
     Dates: start: 20121017
  2. TELAPREVIR [Suspect]
     Active Substance: TELAPREVIR
     Indication: HEPATITIS C
     Route: 065
  3. PEGASYS [Suspect]
     Active Substance: PEGINTERFERON ALFA-2A
     Indication: HEPATITIS C
     Route: 065
     Dates: start: 20121017

REACTIONS (10)
  - Haemoglobin decreased [Unknown]
  - Memory impairment [Unknown]
  - Toothache [Unknown]
  - Tooth extraction [Unknown]
  - Pruritus [Unknown]
  - Poor peripheral circulation [Unknown]
  - Depression [Unknown]
  - Burning sensation [Unknown]
  - Paranoia [Unknown]
  - Dental caries [Unknown]

NARRATIVE: CASE EVENT DATE: 20121103
